FAERS Safety Report 9919332 (Version 1)
Quarter: 2014Q1

REPORT INFORMATION
  Report Type: Report from Study
  Country: US (occurrence: RU)
  Receive Date: 20140224
  Receipt Date: 20140224
  Transmission Date: 20141002
  Serious: Yes (Other)
  Sender: FDA-Public Use
  Company Number: RU-US-EMD SERONO, INC.-7253427

PATIENT
  Age: 25 Year
  Sex: Female

DRUGS (3)
  1. GONAL-F [Suspect]
     Indication: POLYCYSTIC OVARIES
  2. CETROTIDE (CETRORELIX ACETATE FOR INJECTION) [Suspect]
     Indication: POLYCYSTIC OVARIES
  3. DIPHERELINE                        /00975901/ [Concomitant]
     Indication: POLYCYSTIC OVARIES

REACTIONS (1)
  - Blighted ovum [Unknown]
